FAERS Safety Report 21399901 (Version 1)
Quarter: 2022Q4

REPORT INFORMATION
  Report Type: Spontaneous
  Country: US (occurrence: US)
  Receive Date: 20221002
  Receipt Date: 20221002
  Transmission Date: 20230113
  Serious: No
  Sender: FDA-Public Use
  Company Number: None

PATIENT
  Age: 82 Year
  Sex: Female
  Weight: 71.67 kg

DRUGS (18)
  1. VASCEPA [Suspect]
     Active Substance: ICOSAPENT ETHYL
     Indication: Blood cholesterol increased
     Route: 048
     Dates: start: 20210826
  2. BLACK CHERRY [Concomitant]
     Active Substance: BLACK CHERRY
     Indication: Product used for unknown indication
     Dosage: A COUPLE OF TABLESPOONS
  3. POMEGRANATE [Concomitant]
     Active Substance: POMEGRANATE
     Indication: Product used for unknown indication
  4. Wild Alaskan Fish Oil Preservision [Concomitant]
     Indication: Product used for unknown indication
  5. LUTEIN [Concomitant]
     Active Substance: LUTEIN
     Indication: Product used for unknown indication
     Dosage: FREQUENCY TEXT : TWICE DAILY
  6. VITAMIN C [Concomitant]
     Active Substance: ASCORBIC ACID
     Indication: Product used for unknown indication
  7. VITAMIN E [Concomitant]
     Active Substance: .ALPHA.-TOCOPHEROL
     Indication: Product used for unknown indication
  8. ZINC [Concomitant]
     Active Substance: ZINC
     Indication: Product used for unknown indication
  9. COPPER [Concomitant]
     Active Substance: COPPER
     Indication: Product used for unknown indication
  10. ZEAXANTHIN [Concomitant]
     Active Substance: ZEAXANTHIN
     Indication: Product used for unknown indication
  11. ALLOPURINOL [Concomitant]
     Active Substance: ALLOPURINOL
     Indication: Product used for unknown indication
     Dosage: FREQUENCY TEXT : DAILY
  12. PREMARIN [Concomitant]
     Active Substance: ESTROGENS, CONJUGATED
     Indication: Vaginal disorder
  13. VITAMIN B12 [Concomitant]
     Active Substance: CYANOCOBALAMIN
     Indication: Product used for unknown indication
     Dosage: FREQUENCY TEXT : DAILY
  14. CYANOCOBALAMIN\DEXPANTHENOL\NIACINAMIDE\PYRIDOXINE HYDROCHLORIDE\RIBOF [Concomitant]
     Active Substance: CYANOCOBALAMIN\DEXPANTHENOL\NIACINAMIDE\PYRIDOXINE HYDROCHLORIDE\RIBOFLAVIN 5^-PHOSPHATE SODIUM\THIA
     Indication: Product used for unknown indication
     Dosage: FREQUENCY TEXT : DAILY
  15. VITAMIN D3 [Concomitant]
     Active Substance: CHOLECALCIFEROL
     Indication: Product used for unknown indication
  16. VITAMIN D3 [Concomitant]
     Active Substance: CHOLECALCIFEROL
  17. Alaphagan P [Concomitant]
     Indication: Glaucoma
     Dosage: FREQUENCY TEXT : THREE TIMES DAILY IN EACH EYE
  18. XALATAN [Concomitant]
     Active Substance: LATANOPROST
     Indication: Glaucoma
     Dosage: FREQUENCY TEXT : BOTH EYES AT BEDTIME

REACTIONS (4)
  - Eructation [Unknown]
  - Hyperhidrosis [Recovered/Resolved]
  - Product taste abnormal [Recovered/Resolved]
  - Off label use [Recovered/Resolved]

NARRATIVE: CASE EVENT DATE: 20210826
